FAERS Safety Report 10339770 (Version 1)
Quarter: 2014Q3

REPORT INFORMATION
  Report Type: Spontaneous
  Country: SE (occurrence: SE)
  Receive Date: 20140724
  Receipt Date: 20140724
  Transmission Date: 20150326
  Serious: Yes (Other)
  Sender: FDA-Public Use
  Company Number: SE-ACTAVIS-2014-15726

PATIENT
  Sex: Female

DRUGS (1)
  1. GABAPENTIN ACTAVIS [Suspect]
     Active Substance: GABAPENTIN
     Indication: TRIGEMINAL NEURALGIA
     Dosage: 4 DF, TID
     Route: 065
     Dates: start: 2007

REACTIONS (2)
  - Drug ineffective [Unknown]
  - Coordination abnormal [Unknown]
